FAERS Safety Report 8601216-0 (Version None)
Quarter: 2012Q3

REPORT INFORMATION
  Report Type: 
  Country: None (occurrence: None)
  Receive Date: 20120817
  Receipt Date: 20120813
  Transmission Date: 20120928
  Serious: Yes (Life-Threatening, Hospitalization, Other)
  Sender: FDA-Public Use
  Company Number: PHHY2010CA03058

PATIENT
  Sex: Male

DRUGS (5)
  1. COGENTIN [Concomitant]
     Dosage: 2 MG, QHS
  2. HALDOL [Concomitant]
     Dosage: 100 MG, UNK
  3. CLOZARIL [Suspect]
     Indication: SCHIZOPHRENIA
     Dosage: 200 UKN, UNK
     Route: 048
     Dates: start: 20061117, end: 20120802
  4. ELAVIL [Concomitant]
     Dosage: 2.5 MG, QHS
  5. VALPROATE SODIUM [Concomitant]

REACTIONS (5)
  - THROMBOCYTOPENIA [None]
  - PLATELET COUNT DECREASED [None]
  - HEPATITIS C [None]
  - NEUTROPENIA [None]
  - ANAEMIA [None]
